FAERS Safety Report 21350000 (Version 1)
Quarter: 2022Q3

REPORT INFORMATION
  Report Type: Spontaneous
  Country: US (occurrence: US)
  Receive Date: 20220919
  Receipt Date: 20220919
  Transmission Date: 20221027
  Serious: No
  Sender: FDA-Public Use
  Company Number: US-PFIZER INC-PV202200065035

PATIENT
  Age: 59 Year
  Sex: Female

DRUGS (1)
  1. ATORVASTATIN CALCIUM [Suspect]
     Active Substance: ATORVASTATIN CALCIUM
     Dosage: UNK

REACTIONS (9)
  - Chest pain [Unknown]
  - Lung disorder [Unknown]
  - Condition aggravated [Unknown]
  - Rash [Unknown]
  - Herpes zoster [Unknown]
  - Flatulence [Unknown]
  - Constipation [Unknown]
  - Pyrexia [Unknown]
  - Hypersensitivity [Unknown]
